FAERS Safety Report 10301182 (Version 5)
Quarter: 2020Q2

REPORT INFORMATION
  Report Type: Spontaneous
  Country: US (occurrence: US)
  Receive Date: 20140714
  Receipt Date: 20200612
  Transmission Date: 20200713
  Serious: Yes (Other)
  Sender: FDA-Public Use
  Company Number: US-PFIZER INC-2014192190

PATIENT
  Age: 49 Year
  Sex: Female
  Weight: 53 kg

DRUGS (4)
  1. PREMARIN [Suspect]
     Active Substance: ESTROGENS, CONJUGATED
     Indication: HORMONE REPLACEMENT THERAPY
     Dosage: 0.3 MG, UNK
     Route: 048
     Dates: start: 199610
  2. SYNTHROID [Concomitant]
     Active Substance: LEVOTHYROXINE SODIUM
     Dosage: 75 UG, 1X/DAY
  3. PREMARIN [Suspect]
     Active Substance: ESTROGENS, CONJUGATED
     Dosage: 0.3MG ONE DAY AND 0.625 MG ON THE NEXT DAY, ALTERNATE DAY
     Route: 048
  4. PREMARIN [Suspect]
     Active Substance: ESTROGENS, CONJUGATED
     Dosage: 0.3 MG FIVE DAYS A WEEK AND 0.625 MG TWO DAYS A WEEK

REACTIONS (6)
  - Blood cholesterol increased [Unknown]
  - Intentional product misuse [Unknown]
  - Hypertension [Unknown]
  - Feeling abnormal [Unknown]
  - Lack of spontaneous speech [Unknown]
  - Depressed mood [Unknown]

NARRATIVE: CASE EVENT DATE: 2000
